FAERS Safety Report 8119154-9 (Version None)
Quarter: 2012Q1

REPORT INFORMATION
  Report Type: 
  Country: None (occurrence: None)
  Receive Date: 20120207
  Receipt Date: 20120207
  Transmission Date: 20120608
  Serious: Yes (Hospitalization)
  Sender: FDA-Public Use
  Company Number: None

PATIENT
  Age: 77 Year
  Sex: Female
  Weight: 84 kg

DRUGS (6)
  1. GLUCOSAMINE [Concomitant]
     Route: 048
  2. ATENOLOL [Concomitant]
     Route: 048
  3. DIGOXIN [Concomitant]
     Route: 048
  4. MULTI-VITAMIN [Concomitant]
     Route: 048
  5. DABIGATRAN ETEXILATE [Suspect]
     Indication: ATRIAL FIBRILLATION
     Dosage: 150 MG
     Route: 048
  6. FUROSEMIDE [Concomitant]
     Route: 048

REACTIONS (3)
  - ANAEMIA [None]
  - HAEMATOMA [None]
  - RECTAL HAEMORRHAGE [None]
